FAERS Safety Report 5201027-2 (Version None)
Quarter: 2007Q1

REPORT INFORMATION
  Report Type: 
  Country: None (occurrence: None)
  Receive Date: 20070108
  Receipt Date: 20070103
  Transmission Date: 20070707
  Serious: Yes (Other)
  Sender: FDA-Public Use
  Company Number: GB-GLAXOSMITHKLINE-B0452214A

PATIENT
  Sex: Male

DRUGS (1)
  1. NIQUITIN GUM [Suspect]
     Route: 065

REACTIONS (3)
  - EPISTAXIS [None]
  - HAEMORRHAGE [None]
  - MOUTH HAEMORRHAGE [None]
